FAERS Safety Report 13016718 (Version 1)
Quarter: 2016Q4

REPORT INFORMATION
  Report Type: Spontaneous
  Country: US (occurrence: US)
  Receive Date: 20161212
  Receipt Date: 20161212
  Transmission Date: 20170207
  Serious: No
  Sender: FDA-Public Use
  Company Number: US-TORRENT-00001304

PATIENT
  Sex: Female

DRUGS (1)
  1. LEVETIRACETAM TABLETS, USP [Suspect]
     Active Substance: LEVETIRACETAM
     Indication: SEIZURE
     Route: 049

REACTIONS (4)
  - Flushing [Unknown]
  - Rash [Unknown]
  - Feeling hot [Unknown]
  - Feeling abnormal [Unknown]
